FAERS Safety Report 4990913-4 (Version None)
Quarter: 2006Q2

REPORT INFORMATION
  Report Type: 
  Country: None (occurrence: None)
  Receive Date: 20060503
  Receipt Date: 20050829
  Transmission Date: 20061013
  Serious: Yes (Hospitalization)
  Sender: FDA-Public Use
  Company Number: US-MERCK-0508USA04624

PATIENT
  Age: 71 Year
  Sex: Male
  Weight: 91 kg

DRUGS (2)
  1. VIOXX [Suspect]
     Indication: ARTHRITIS
     Route: 048
     Dates: start: 20000101, end: 20000615
  2. EXTRA STRENGTH TYLENOL [Concomitant]
     Route: 065

REACTIONS (8)
  - ADVERSE EVENT [None]
  - ARTHROPATHY [None]
  - ATELECTASIS [None]
  - CEREBELLAR SYNDROME [None]
  - CEREBROVASCULAR ACCIDENT [None]
  - HYPERTENSION [None]
  - LACUNAR INFARCTION [None]
  - PNEUMONIA [None]
